FAERS Safety Report 4569506-9 (Version None)
Quarter: 2005Q1

REPORT INFORMATION
  Report Type: 
  Country: None (occurrence: None)
  Receive Date: 20050201
  Receipt Date: 20050120
  Transmission Date: 20050727
  Serious: Yes (Hospitalization, Other)
  Sender: FDA-Public Use
  Company Number: 2004085994

PATIENT
  Age: 74 Year
  Sex: Male

DRUGS (5)
  1. NEURONTIN [Suspect]
     Indication: POST HERPETIC NEURALGIA
     Dosage: 200 MG (600 MG, 3 IN 1 D), ORAL
     Route: 048
     Dates: start: 20040705
  2. CARBAMAZEPINE [Suspect]
     Indication: ILL-DEFINED DISORDER
     Dates: start: 20040705, end: 20040705
  3. CLONAZEPAM [Suspect]
     Indication: ILL-DEFINED DISORDER
     Dates: start: 20040705, end: 20041025
  4. TRAMADOL HCL [Suspect]
     Indication: ILL-DEFINED DISORDER
     Dosage: INTRAVENOUS
     Route: 042
     Dates: start: 20040705, end: 20041025
  5. LIDOCAINE [Suspect]
     Indication: ILL-DEFINED DISORDER
     Dosage: INTRAVENOUS
     Route: 042
     Dates: start: 20040705, end: 20041025

REACTIONS (5)
  - BLOOD ALKALINE PHOSPHATASE INCREASED [None]
  - BRONCHIECTASIS [None]
  - GAMMA-GLUTAMYLTRANSFERASE INCREASED [None]
  - PYREXIA [None]
  - RESPIRATORY TRACT INFECTION [None]
